FAERS Safety Report 17465106 (Version 2)
Quarter: 2020Q2

REPORT INFORMATION
  Report Type: Report from Study
  Country: US (occurrence: US)
  Receive Date: 20200226
  Receipt Date: 20200408
  Transmission Date: 20200713
  Serious: No
  Sender: FDA-Public Use
  Company Number: NVSC2020US054851

PATIENT
  Sex: Female
  Weight: 71.21 kg

DRUGS (1)
  1. MAYZENT [Suspect]
     Active Substance: SIPONIMOD
     Indication: PRODUCT USED FOR UNKNOWN INDICATION
     Dosage: 1 MG, QOD
     Route: 048
     Dates: start: 20190816

REACTIONS (3)
  - Weight increased [Unknown]
  - Pain in extremity [Unknown]
  - Dysstasia [Unknown]
